FAERS Safety Report 5917793-4 (Version None)
Quarter: 2008Q4

REPORT INFORMATION
  Report Type: 
  Country: None (occurrence: None)
  Receive Date: 20081014
  Receipt Date: 20081008
  Transmission Date: 20090506
  Serious: Yes (Hospitalization, Disabling)
  Sender: FDA-Public Use
  Company Number: JP-JNJCH-2008051604

PATIENT
  Age: 66 Year
  Sex: Female

DRUGS (1)
  1. ASPIRIN [Suspect]
     Indication: MENINGIOMA
     Dosage: TEXT:81 MG/D THEN 100 MG/D
     Route: 048

REACTIONS (8)
  - BLOOD PRESSURE INCREASED [None]
  - BRAIN OEDEMA [None]
  - HAEMATOMA [None]
  - HEADACHE [None]
  - MUSCULAR WEAKNESS [None]
  - NEOPLASM PROGRESSION [None]
  - SUBDURAL HAEMORRHAGE [None]
  - VOMITING [None]
